FAERS Safety Report 18615224 (Version 3)
Quarter: 2021Q1

REPORT INFORMATION
  Report Type: Report from Study
  Country: None (occurrence: US)
  Receive Date: 20201215
  Receipt Date: 20210214
  Transmission Date: 20210419
  Serious: Yes (Other)
  Sender: FDA-Public Use
  Company Number: US-ABBVIE-20K-163-3683770-00

PATIENT
  Sex: Female
  Weight: 81.72 kg

DRUGS (4)
  1. HUMIRA [Suspect]
     Active Substance: ADALIMUMAB
     Indication: ANKYLOSING SPONDYLITIS
     Route: 058
     Dates: start: 202010, end: 202011
  2. PROTONIX [Concomitant]
     Active Substance: PANTOPRAZOLE SODIUM
     Indication: INFLAMMATION
  3. HUMIRA [Suspect]
     Active Substance: ADALIMUMAB
     Route: 058
  4. MELOXICAM. [Concomitant]
     Active Substance: MELOXICAM
     Indication: INFLAMMATION

REACTIONS (10)
  - Swelling [Not Recovered/Not Resolved]
  - Musculoskeletal stiffness [Recovered/Resolved]
  - Osteoarthritis [Recovered/Resolved]
  - Dysstasia [Recovering/Resolving]
  - Fatigue [Recovering/Resolving]
  - Mobility decreased [Recovering/Resolving]
  - Neck pain [Not Recovered/Not Resolved]
  - Joint range of motion decreased [Recovering/Resolving]
  - Back pain [Not Recovered/Not Resolved]
  - Feeling abnormal [Recovering/Resolving]

NARRATIVE: CASE EVENT DATE: 2020
